FAERS Safety Report 11540547 (Version 1)
Quarter: 2015Q3

REPORT INFORMATION
  Report Type: Spontaneous
  Country: US (occurrence: US)
  Receive Date: 20150923
  Receipt Date: 20150923
  Transmission Date: 20151125
  Serious: No
  Sender: FDA-Public Use
  Company Number: US-BEH-2015049515

PATIENT
  Age: 48 Year
  Sex: Female
  Weight: 75 kg

DRUGS (28)
  1. EPIPEN [Concomitant]
     Active Substance: EPINEPHRINE
  2. TRAMADOL. [Concomitant]
     Active Substance: TRAMADOL
  3. TIZANIDINE. [Concomitant]
     Active Substance: TIZANIDINE
  4. PRIVIGEN [Suspect]
     Active Substance: HUMAN IMMUNOGLOBULIN G
     Indication: PRODUCT USED FOR UNKNOWN INDICATION
     Route: 042
  5. ACETAMINOPHEN. [Concomitant]
     Active Substance: ACETAMINOPHEN
  6. DIPHENHYDRAMINE. [Concomitant]
     Active Substance: DIPHENHYDRAMINE
  7. COREG [Concomitant]
     Active Substance: CARVEDILOL
  8. MONTELUKAST [Concomitant]
     Active Substance: MONTELUKAST SODIUM
  9. DICYCLOMINE [Concomitant]
     Active Substance: DICYCLOMINE HYDROCHLORIDE
  10. OMEGA-3 ACIDS [Concomitant]
     Active Substance: OMEGA-3 FATTY ACIDS
  11. ABILIFY [Concomitant]
     Active Substance: ARIPIPRAZOLE
  12. NASONEX [Concomitant]
     Active Substance: MOMETASONE FUROATE
  13. ZYRTEC [Concomitant]
     Active Substance: CETIRIZINE HYDROCHLORIDE
  14. GABAPENTIN. [Concomitant]
     Active Substance: GABAPENTIN
  15. CYTOMEL [Concomitant]
     Active Substance: LIOTHYRONINE SODIUM
  16. LMX [Concomitant]
     Active Substance: LIDOCAINE
  17. PROTONIX [Concomitant]
     Active Substance: PANTOPRAZOLE SODIUM
  18. SYNTHROID [Concomitant]
     Active Substance: LEVOTHYROXINE SODIUM
  19. HEPARIN [Concomitant]
     Active Substance: HEPARIN SODIUM
  20. LIDOCAINE/PRILOCAINE [Concomitant]
  21. POTASSIUM CHLORIDE. [Concomitant]
     Active Substance: POTASSIUM CHLORIDE
  22. VESICARE [Concomitant]
     Active Substance: SOLIFENACIN SUCCINATE
  23. SODIUM CHLORIDE. [Concomitant]
     Active Substance: SODIUM CHLORIDE
  24. DULOXETINE. [Concomitant]
     Active Substance: DULOXETINE
  25. RESTORIL [Concomitant]
     Active Substance: TEMAZEPAM
  26. FOLIC ACID. [Concomitant]
     Active Substance: FOLIC ACID
  27. ABILIFY [Concomitant]
     Active Substance: ARIPIPRAZOLE
  28. METHOTREXATE [Concomitant]
     Active Substance: METHOTREXATE

REACTIONS (1)
  - Urticaria [Unknown]

NARRATIVE: CASE EVENT DATE: 20150220
